FAERS Safety Report 9166772 (Version 1)
Quarter: 2012Q4

REPORT INFORMATION
  Report Type: 
  Country: US (occurrence: US)
  Receive Date: 20121126
  Receipt Date: 20121126
  Transmission Date: 20130627
  Serious: Yes (Other)
  Sender: FDA-Public Use
  Company Number: US-RB-046848-12

PATIENT
  Age: 57 Year
  Sex: Male

DRUGS (3)
  1. MUCINEX DM MAXIMUM STRENGTH [Suspect]
     Indication: PRODUCT USED FOR UNKNOWN INDICATION
     Dosage: Patient took 3 tablets within 24 hours
     Route: 048
     Dates: start: 20121117
  2. MUCINEX DM MAXIMUM STRENGTH [Suspect]
  3. NYQUIL [Suspect]
     Indication: PRODUCT USED FOR UNKNOWN INDICATION
     Dates: start: 20121117

REACTIONS (3)
  - Hallucination [Not Recovered/Not Resolved]
  - Dizziness [Not Recovered/Not Resolved]
  - Overdose [Unknown]
